FAERS Safety Report 7342080-X (Version None)
Quarter: 2011Q1

REPORT INFORMATION
  Report Type: 
  Country: None (occurrence: None)
  Receive Date: 20110309
  Receipt Date: 20110302
  Transmission Date: 20110831
  Serious: Yes (Other)
  Sender: FDA-Public Use
  Company Number: AU-ASTRAZENECA-2011SE11450

PATIENT
  Age: 49 Year
  Sex: Female

DRUGS (3)
  1. CARBAMAZEPINE [Concomitant]
     Indication: EPILEPSY
  2. ROPIVACAINE [Suspect]
     Indication: CATARACT OPERATION
  3. MIDAZOLAM [Concomitant]
     Indication: SEDATION

REACTIONS (1)
  - GRAND MAL CONVULSION [None]
